FAERS Safety Report 9316433 (Version 1)
Quarter: 2013Q2

REPORT INFORMATION
  Report Type: Spontaneous
  Country: US (occurrence: None)
  Receive Date: 20130528
  Receipt Date: 20130528
  Transmission Date: 20140414
  Serious: Yes (Other)
  Sender: FDA-Public Use
  Company Number: None

PATIENT
  Age: 35 Year
  Sex: Female
  Weight: 128.37 kg

DRUGS (1)
  1. CYCLOBENZAPRINE [Suspect]
     Indication: MUSCLE SPASMS
     Route: 048
     Dates: start: 20130523, end: 20130524

REACTIONS (2)
  - Diarrhoea [None]
  - Renal pain [None]
